FAERS Safety Report 8520095-3 (Version None)
Quarter: 2012Q3

REPORT INFORMATION
  Report Type: 
  Country: None (occurrence: None)
  Receive Date: 20120719
  Receipt Date: 20120712
  Transmission Date: 20120928
  Serious: Yes (Hospitalization)
  Sender: FDA-Public Use
  Company Number: US-GENZYME-CAMP-1002330

PATIENT
  Age: 82 Year
  Sex: Female
  Weight: 45.1 kg

DRUGS (7)
  1. RITUXIMAB [Suspect]
     Indication: CHRONIC LYMPHOCYTIC LEUKAEMIA
     Dosage: 375 MG/M2, ON DAYS 8, 15, 22, 29 OF CYCLE 1
     Route: 042
     Dates: start: 20120101, end: 20120101
  2. RITUXIMAB [Suspect]
     Dosage: 375 MG/M2, ON DAYS 3, 10, 17, 24 OF CYCLE 2
     Route: 042
     Dates: start: 20120101, end: 20120101
  3. CAMPATH [Suspect]
     Dosage: CYCLE 2: ON DAYS 1, 3, 5, 8, 10, 13, 15, 17, 19, 22, 24, 26
     Route: 058
     Dates: start: 20120101, end: 20120101
  4. CAMPATH [Suspect]
     Indication: CHRONIC LYMPHOCYTIC LEUKAEMIA
     Dosage: 3 MG, CYCLE 1: DAY 1
     Route: 058
     Dates: start: 20120101, end: 20120101
  5. CAMPATH [Suspect]
     Dosage: 30 MG, CYCLE 1: DAY 3
     Route: 058
     Dates: start: 20120101, end: 20120101
  6. CAMPATH [Suspect]
     Dosage: 10 MG, CYCLE 1: DAY 2
     Route: 058
     Dates: start: 20120101, end: 20120101
  7. CAMPATH [Suspect]
     Dosage: CYCLE 1: ON DAYS 6, 8, 10, 13, 15, 17, 20, 22, 24, 27, 29, 31
     Route: 058
     Dates: start: 20120101, end: 20120101

REACTIONS (2)
  - HEMIPARESIS [None]
  - PROGRESSIVE MULTIFOCAL LEUKOENCEPHALOPATHY [None]
